FAERS Safety Report 13549619 (Version 1)
Quarter: 2017Q2

REPORT INFORMATION
  Report Type: Spontaneous
  Country: US (occurrence: US)
  Receive Date: 20170516
  Receipt Date: 20170516
  Transmission Date: 20170830
  Serious: Yes (Death)
  Sender: FDA-Public Use
  Company Number: US-PERRIGO-17US023347

PATIENT
  Sex: Female

DRUGS (1)
  1. LOPERAMIDE HYDROCHLORIDE. [Suspect]
     Active Substance: LOPERAMIDE HYDROCHLORIDE
     Indication: DIARRHOEA
     Dosage: 4MG TO 16 MG, QD
     Route: 048

REACTIONS (5)
  - Faecaloma [Unknown]
  - Megacolon [Fatal]
  - Drug ineffective [Unknown]
  - Decreased appetite [Unknown]
  - Malaise [Unknown]
